FAERS Safety Report 8724729 (Version 2)
Quarter: 2012Q4

REPORT INFORMATION
  Report Type: 
  Country: GB (occurrence: GB)
  Receive Date: 20120815
  Receipt Date: 20120831
  Transmission Date: 20130627
  Serious: Yes (Life-Threatening, Hospitalization, Disabling)
  Sender: FDA-Public Use
  Company Number: PHHY2011GB03555

PATIENT
  Age: 63 Year
  Sex: Female
  Weight: 100 kg

DRUGS (8)
  1. DOCETAXEL [Suspect]
     Indication: BREAST CANCER STAGE I
     Dosage: 100 mg/m2, UNK
     Route: 042
  2. DOCETAXEL [Suspect]
     Dosage: 75 mg/m2, UNK
     Route: 042
     Dates: start: 20100430, end: 20100525
  3. HERCEPTIN [Suspect]
     Indication: BREAST CANCER STAGE I
     Dosage: 805 mg, UNK
     Route: 042
     Dates: start: 20100521
  4. CYCLOPHOSPHAMIDE [Concomitant]
  5. DEXAMETHASONE [Concomitant]
  6. EPIRUBICIN [Concomitant]
  7. FLUOROURACIL [Concomitant]
  8. TINZAPARIN [Concomitant]

REACTIONS (7)
  - Multi-organ failure [Unknown]
  - Necrotising fasciitis [Recovered/Resolved with Sequelae]
  - Neutropenic sepsis [Unknown]
  - Mobility decreased [Unknown]
  - Malaise [Unknown]
  - Pain [Unknown]
  - Myalgia [Unknown]
